FAERS Safety Report 4707656-4 (Version None)
Quarter: 2005Q3

REPORT INFORMATION
  Report Type: 
  Country: None (occurrence: None)
  Receive Date: 20050705
  Receipt Date: 20050623
  Transmission Date: 20060218
  Serious: Yes (Death)
  Sender: FDA-Public Use
  Company Number: 2005092254

PATIENT
  Sex: 0

DRUGS (1)
  1. FRAGMIN [Suspect]

REACTIONS (1)
  - HEPARIN-INDUCED THROMBOCYTOPENIA [None]
